FAERS Safety Report 15369807 (Version 1)
Quarter: 2018Q4

REPORT INFORMATION
  Report Type: Spontaneous
  Country: US (occurrence: US)
  Receive Date: 20180911
  Receipt Date: 20180911
  Transmission Date: 20190204
  Serious: No
  Sender: FDA-Public Use
  Company Number: US-TORRENT-00006165

PATIENT
  Weight: 63 kg

DRUGS (1)
  1. MONTELUKAST SODIUM CHEWABLE [Suspect]
     Active Substance: MONTELUKAST SODIUM
     Indication: PRODUCT USED FOR UNKNOWN INDICATION
     Dosage: UNKNOWN

REACTIONS (2)
  - Product quality issue [Unknown]
  - Drug ineffective [Unknown]
